FAERS Safety Report 25943332 (Version 1)
Quarter: 2025Q4

REPORT INFORMATION
  Report Type: Spontaneous
  Country: CN (occurrence: CN)
  Receive Date: 20251021
  Receipt Date: 20251021
  Transmission Date: 20260117
  Serious: Yes (Other)
  Sender: HISUN PHARMACEUTICALS USA INC
  Company Number: CN-Hisun Pharmaceuticals USA Inc.-000783

PATIENT
  Age: 66 Year
  Sex: Male

DRUGS (1)
  1. TICAGRELOR [Suspect]
     Active Substance: TICAGRELOR
     Indication: Arteriosclerosis coronary artery
     Route: 048
     Dates: start: 20250922, end: 20250925

REACTIONS (2)
  - Dyspnoea [Recovering/Resolving]
  - Asphyxia [Recovering/Resolving]

NARRATIVE: CASE EVENT DATE: 20250925
